FAERS Safety Report 13429028 (Version 1)
Quarter: 2017Q2

REPORT INFORMATION
  Report Type: Spontaneous
  Country: US (occurrence: US)
  Receive Date: 20170411
  Receipt Date: 20170411
  Transmission Date: 20170830
  Serious: No
  Sender: FDA-Public Use
  Company Number: US-009507513-1704USA003836

PATIENT

DRUGS (1)
  1. REMERON [Suspect]
     Active Substance: MIRTAZAPINE
     Route: 048

REACTIONS (2)
  - Wrong technique in product usage process [Unknown]
  - No adverse event [Unknown]
